FAERS Safety Report 18327768 (Version 1)
Quarter: 2020Q3

REPORT INFORMATION
  Report Type: Spontaneous
  Country: IT (occurrence: IT)
  Receive Date: 20200929
  Receipt Date: 20200929
  Transmission Date: 20201103
  Serious: Yes (Other)
  Sender: FDA-Public Use
  Company Number: NVSC2020IT261466

PATIENT
  Age: 90 Year
  Sex: Female
  Weight: 60 kg

DRUGS (1)
  1. CEFTRIAXONE. [Suspect]
     Active Substance: CEFTRIAXONE
     Indication: PROPHYLAXIS
     Dosage: 2 G, QD
     Route: 065
     Dates: start: 20200907

REACTIONS (2)
  - Ecchymosis [Unknown]
  - Thrombocytopenia [Unknown]
